FAERS Safety Report 26098451 (Version 1)
Quarter: 2025Q4

REPORT INFORMATION
  Report Type: Spontaneous
  Country: TW (occurrence: TW)
  Receive Date: 20251127
  Receipt Date: 20251127
  Transmission Date: 20260118
  Serious: Yes (Other)
  Sender: JAZZ
  Company Number: TW-JAZZ PHARMACEUTICALS-2025-TW-027232

PATIENT
  Age: 45 Year
  Sex: Female

DRUGS (1)
  1. CANNABIDIOL [Suspect]
     Active Substance: CANNABIDIOL
     Indication: Tuberous sclerosis complex
     Dosage: UNK

REACTIONS (1)
  - Colorectal cancer [Unknown]

NARRATIVE: CASE EVENT DATE: 20251001
